FAERS Safety Report 20848091 (Version 1)
Quarter: 2022Q2

REPORT INFORMATION
  Report Type: Spontaneous
  Country: IL (occurrence: IL)
  Receive Date: 20220519
  Receipt Date: 20220519
  Transmission Date: 20220721
  Serious: Yes (Hospitalization, Other)
  Sender: FDA-Public Use
  Company Number: IL-INCYTE CORPORATION-2022IN004720

PATIENT
  Age: 55 Year
  Sex: Male

DRUGS (1)
  1. ICLUSIG [Suspect]
     Active Substance: PONATINIB
     Indication: Chronic myeloid leukaemia
     Dosage: 35 MILLIGRAM, 1/WEEK
     Route: 065

REACTIONS (3)
  - Cardiac disorder [Recovered/Resolved]
  - Cerebrovascular accident [Recovered/Resolved]
  - Abdominal pain [Recovered/Resolved]
